FAERS Safety Report 25461924 (Version 1)
Quarter: 2025Q2

REPORT INFORMATION
  Report Type: Spontaneous
  Country: US (occurrence: US)
  Receive Date: 20250620
  Receipt Date: 20250620
  Transmission Date: 20250716
  Serious: Yes (Disabling)
  Sender: TAIHO ONCOLOGY INC
  Company Number: US-TAIHOP-2025-006507

PATIENT
  Sex: Male

DRUGS (1)
  1. LONSURF [Suspect]
     Active Substance: TIPIRACIL HYDROCHLORIDE\TRIFLURIDINE
     Indication: Gastric cancer
     Route: 048
     Dates: start: 202505, end: 202506

REACTIONS (1)
  - General physical health deterioration [Recovering/Resolving]
